FAERS Safety Report 6355352-2 (Version None)
Quarter: 2009Q3

REPORT INFORMATION
  Report Type: 
  Country: None (occurrence: None)
  Receive Date: 20090914
  Receipt Date: 20090902
  Transmission Date: 20100115
  Serious: Yes (Other)
  Sender: FDA-Public Use
  Company Number: US-BAXTER-2009BH013354

PATIENT
  Age: 68 Year
  Sex: Male

DRUGS (1)
  1. HEPARIN SODIUM 5,000 UNITS IN DEXTROSE 5% [Suspect]
     Indication: DRUG USE FOR UNKNOWN INDICATION
     Route: 041
     Dates: start: 20090824, end: 20090824

REACTIONS (2)
  - OVERDOSE [None]
  - PROTHROMBIN TIME PROLONGED [None]
